FAERS Safety Report 17258977 (Version 1)
Quarter: 2020Q1

REPORT INFORMATION
  Report Type: Spontaneous
  Country: US (occurrence: US)
  Receive Date: 20200110
  Receipt Date: 20200110
  Transmission Date: 20200409
  Serious: Yes (Hospitalization, Other)
  Sender: FDA-Public Use
  Company Number: US-SA-2020SA007330

PATIENT

DRUGS (2)
  1. PLAVIX [Suspect]
     Active Substance: CLOPIDOGREL BISULFATE
     Dosage: UNK
     Dates: start: 2006
  2. BRILINTA [Suspect]
     Active Substance: TICAGRELOR
     Dosage: UNK

REACTIONS (3)
  - Cardiac operation [Unknown]
  - Haemorrhage [Unknown]
  - Myocardial infarction [Unknown]
